FAERS Safety Report 10301290 (Version 5)
Quarter: 2014Q3

REPORT INFORMATION
  Report Type: Spontaneous
  Country: US (occurrence: MX)
  Receive Date: 20140714
  Receipt Date: 20140808
  Transmission Date: 20150326
  Serious: Yes (Hospitalization)
  Sender: FDA-Public Use
  Company Number: US-JNJFOC-20140704355

PATIENT
  Sex: Female
  Weight: 68 kg

DRUGS (4)
  1. OLYSIO [Suspect]
     Active Substance: SIMEPREVIR
     Indication: HEPATITIS C
     Route: 048
     Dates: start: 201406, end: 201406
  2. OLYSIO [Suspect]
     Active Substance: SIMEPREVIR
     Indication: HEPATITIS C
     Route: 048
     Dates: start: 201404, end: 201406
  3. SOVALDI [Suspect]
     Active Substance: SOFOSBUVIR
     Indication: HEPATITIS C
     Route: 065
     Dates: start: 201404
  4. OLYSIO [Suspect]
     Active Substance: SIMEPREVIR
     Indication: HEPATITIS C
     Route: 048
     Dates: start: 201406, end: 201406

REACTIONS (6)
  - Adverse event [Not Recovered/Not Resolved]
  - Off label use [Recovered/Resolved]
  - Drug dose omission [Recovered/Resolved]
  - Cardiac failure [Unknown]
  - Arrhythmia [Unknown]
  - Blood creatine phosphokinase MB increased [Recovered/Resolved]

NARRATIVE: CASE EVENT DATE: 2014
